FAERS Safety Report 23061491 (Version 1)
Quarter: 2023Q4

REPORT INFORMATION
  Report Type: Spontaneous
  Country: US (occurrence: None)
  Receive Date: 20231013
  Receipt Date: 20231013
  Transmission Date: 20240110
  Serious: No
  Sender: FDA-Public Use
  Company Number: 2023A229929

PATIENT

DRUGS (1)
  1. BYDUREON BCISE [Suspect]
     Active Substance: EXENATIDE

REACTIONS (5)
  - Furuncle [Recovered/Resolved]
  - Scar [Unknown]
  - Sinusitis [Unknown]
  - Hypersensitivity [Unknown]
  - Illness [Unknown]
